FAERS Safety Report 4390243-8 (Version None)
Quarter: 2004Q3

REPORT INFORMATION
  Report Type: 
  Country: None (occurrence: None)
  Receive Date: 20040706
  Receipt Date: 20040325
  Transmission Date: 20050211
  Serious: Yes (Other)
  Sender: FDA-Public Use
  Company Number: US-ROCHE-363035

PATIENT
  Sex: Female
  Weight: 4.3 kg

DRUGS (6)
  1. INVIRASE [Suspect]
     Indication: SYSTEMIC ANTIVIRAL TREATMENT
     Dates: end: 20040504
  2. ZIAGEN [Suspect]
     Indication: SYSTEMIC ANTIVIRAL TREATMENT
  3. ZERIT [Suspect]
     Indication: SYSTEMIC ANTIVIRAL TREATMENT
  4. NORVIR [Suspect]
     Indication: SYSTEMIC ANTIVIRAL TREATMENT
     Dates: end: 20040504
  5. LAMIVUDINE [Suspect]
     Indication: SYSTEMIC ANTIVIRAL TREATMENT
  6. KALETRA [Suspect]
     Indication: SYSTEMIC ANTIVIRAL TREATMENT
     Dates: start: 20040531, end: 20040531

REACTIONS (3)
  - LIVE BIRTH [None]
  - NO ADVERSE EFFECT [None]
  - PREGNANCY [None]
